FAERS Safety Report 6575408-9 (Version None)
Quarter: 2010Q1

REPORT INFORMATION
  Report Type: 
  Country: None (occurrence: None)
  Receive Date: 20100209
  Receipt Date: 20100207
  Transmission Date: 20100710
  Serious: Yes (Death, Hospitalization)
  Sender: FDA-Public Use
  Company Number: DE-ABBOTT-09P-062-0595471-00

PATIENT
  Sex: Female

DRUGS (27)
  1. HUMIRA [Suspect]
     Indication: RHEUMATOID ARTHRITIS
     Dates: start: 20050101, end: 20050501
  2. METHOTREXATE [Concomitant]
     Indication: DRUG USE FOR UNKNOWN INDICATION
     Route: 058
     Dates: start: 20030501, end: 20071101
  3. METHOTREXATE [Concomitant]
     Dates: start: 20030501, end: 20041201
  4. METHOTREXATE [Concomitant]
     Dates: start: 20050101, end: 20050501
  5. METHOTREXATE [Concomitant]
     Dates: start: 20050601, end: 20050901
  6. METHOTREXATE [Concomitant]
     Dates: start: 20050120
  7. METHOTREXATE [Concomitant]
     Dates: start: 20050414
  8. METHOTREXATE [Concomitant]
     Dates: start: 20050707
  9. METHOTREXATE [Concomitant]
     Dates: start: 20060118
  10. METHOTREXATE [Concomitant]
     Dates: start: 20060118
  11. METHOTREXATE [Concomitant]
     Dates: start: 20070115
  12. METHOTREXATE [Concomitant]
     Dates: start: 20070702
  13. METHOTREXATE [Concomitant]
     Dates: start: 20071101
  14. TOCILIZUMAB [Concomitant]
     Indication: DRUG USE FOR UNKNOWN INDICATION
     Dates: start: 20050901, end: 20070801
  15. RTX [Concomitant]
     Indication: DRUG USE FOR UNKNOWN INDICATION
     Dates: start: 20070901
  16. DECORTIN [Concomitant]
     Indication: DRUG USE FOR UNKNOWN INDICATION
  17. CELEBREX [Concomitant]
     Indication: DRUG USE FOR UNKNOWN INDICATION
  18. NEURONTIN [Concomitant]
     Indication: DRUG USE FOR UNKNOWN INDICATION
  19. NEXIUM [Concomitant]
     Indication: DRUG USE FOR UNKNOWN INDICATION
  20. FOLIC ACID [Concomitant]
     Indication: DRUG USE FOR UNKNOWN INDICATION
  21. CALCIUMAGON D3 [Concomitant]
     Indication: DRUG USE FOR UNKNOWN INDICATION
  22. FOSAMAX [Concomitant]
     Indication: DRUG USE FOR UNKNOWN INDICATION
  23. METHOTREXAT [Concomitant]
     Indication: DRUG USE FOR UNKNOWN INDICATION
     Dates: start: 20050101, end: 20050501
  24. KINERET [Concomitant]
     Indication: DRUG USE FOR UNKNOWN INDICATION
     Dates: start: 20050601, end: 20050901
  25. INTERLEUKIN6 ANTAGONIST AMD MTX [Concomitant]
     Indication: DRUG USE FOR UNKNOWN INDICATION
     Dates: start: 20050901
  26. MABTHERA [Concomitant]
     Indication: DRUG USE FOR UNKNOWN INDICATION
     Dates: start: 20070801
  27. ANAKINRA [Concomitant]
     Indication: DRUG USE FOR UNKNOWN INDICATION
     Dates: start: 20050601, end: 20050901

REACTIONS (5)
  - DYSPNOEA [None]
  - IDIOPATHIC PULMONARY FIBROSIS [None]
  - LOWER RESPIRATORY TRACT INFECTION [None]
  - PULMONARY EMBOLISM [None]
  - RESPIRATORY FAILURE [None]
